FAERS Safety Report 12347241 (Version 2)
Quarter: 2016Q2

REPORT INFORMATION
  Report Type: Spontaneous
  Country: FR (occurrence: FR)
  Receive Date: 20160509
  Receipt Date: 20160510
  Transmission Date: 20160815
  Serious: Yes (Other)
  Sender: FDA-Public Use
  Company Number: FR-PFIZER INC-2016239455

PATIENT
  Age: 45 Year
  Sex: Male

DRUGS (12)
  1. FENTANYL. [Suspect]
     Active Substance: FENTANYL
     Dosage: UNK UNK, SINGLE
     Dates: start: 201603, end: 201603
  2. LYRICA [Suspect]
     Active Substance: PREGABALIN
     Dosage: DECREASED DOSE
     Dates: start: 201601
  3. FENTANYL. [Suspect]
     Active Substance: FENTANYL
     Dosage: 2 DF, DAILY
     Route: 062
  4. SERESTA [Suspect]
     Active Substance: OXAZEPAM
     Dosage: 50 MG, 1X/DAY
     Route: 048
  5. METHADONE [Concomitant]
     Active Substance: METHADONE HYDROCHLORIDE
     Dosage: 90 MG, DAILY
     Dates: start: 201601
  6. LYRICA [Suspect]
     Active Substance: PREGABALIN
     Dosage: 475 MG, DAILY
     Dates: start: 201603
  7. METHADONE [Concomitant]
     Active Substance: METHADONE HYDROCHLORIDE
     Dosage: 80 MG, DAILY
     Dates: start: 201512
  8. PAROXETINE. [Concomitant]
     Active Substance: PAROXETINE
     Dosage: 40 MG, DAILY
     Dates: start: 201510
  9. LYRICA [Suspect]
     Active Substance: PREGABALIN
     Dosage: 300 MG, 2X/DAY
     Route: 048
  10. METHADONE [Concomitant]
     Active Substance: METHADONE HYDROCHLORIDE
     Dosage: 75 MG, DAILY
     Dates: start: 201510
  11. PAROXETINE. [Concomitant]
     Active Substance: PAROXETINE
     Dosage: 40 MG, DAILY
     Dates: start: 201603
  12. QUETIAPINE. [Concomitant]
     Active Substance: QUETIAPINE
     Dosage: 100 MG, DAILY
     Dates: start: 201603

REACTIONS (2)
  - Intentional product misuse [Unknown]
  - Substance abuse [Not Recovered/Not Resolved]

NARRATIVE: CASE EVENT DATE: 201603
